FAERS Safety Report 4829841-3 (Version None)
Quarter: 2005Q4

REPORT INFORMATION
  Report Type: 
  Country: None (occurrence: None)
  Receive Date: 20051115
  Receipt Date: 20051031
  Transmission Date: 20060501
  Serious: Yes (Hospitalization, Other)
  Sender: FDA-Public Use
  Company Number: 2004BI001199

PATIENT
  Sex: Female

DRUGS (9)
  1. AVONEX [Suspect]
     Indication: MULTIPLE SCLEROSIS
     Dosage: 30 UG;QW; IM
     Route: 030
     Dates: start: 19991001
  2. NEURONTIN [Concomitant]
  3. ZOCOR [Concomitant]
  4. NITRAMINE [Concomitant]
  5. LEVOXYL [Concomitant]
  6. FOSAMAX [Concomitant]
  7. IMIPRAMINE [Concomitant]
  8. PROVIGIL [Concomitant]
  9. PROTONIX [Concomitant]

REACTIONS (16)
  - ANAEMIA [None]
  - BACK DISORDER [None]
  - BRONCHIECTASIS [None]
  - CARDIOMEGALY [None]
  - CHRONIC OBSTRUCTIVE PULMONARY DISEASE [None]
  - COR PULMONALE [None]
  - CORONARY ARTERY DISEASE [None]
  - GASTROINTESTINAL HAEMORRHAGE [None]
  - INTERSTITIAL LUNG DISEASE [None]
  - LUNG INFILTRATION [None]
  - MYOCARDIAL INFARCTION [None]
  - PULMONARY ARTERY DILATATION [None]
  - PULMONARY FIBROSIS [None]
  - REFUSAL OF TREATMENT BY PATIENT [None]
  - RESTRICTIVE PULMONARY DISEASE [None]
  - SPINAL DISORDER [None]
